FAERS Safety Report 11404132 (Version 3)
Quarter: 2015Q4

REPORT INFORMATION
  Report Type: Spontaneous
  Country: GR (occurrence: GR)
  Receive Date: 20150821
  Receipt Date: 20151217
  Transmission Date: 20160304
  Serious: Yes (Other)
  Sender: FDA-Public Use
  Company Number: GR-JNJFOC-20150812270

PATIENT
  Sex: Male

DRUGS (2)
  1. SOVALDI [Concomitant]
     Active Substance: SOFOSBUVIR
     Indication: CHRONIC HEPATITIS C
     Route: 065
     Dates: start: 20150720
  2. OLYSIO [Suspect]
     Active Substance: SIMEPREVIR
     Indication: CHRONIC HEPATITIS C
     Route: 048
     Dates: start: 20150720

REACTIONS (1)
  - Leser-Trelat sign [Not Recovered/Not Resolved]

NARRATIVE: CASE EVENT DATE: 20150817
